FAERS Safety Report 5596942-4 (Version None)
Quarter: 2007Q4

REPORT INFORMATION
  Report Type: 
  Country: None (occurrence: None)
  Receive Date: 20071220
  Receipt Date: 20070116
  Transmission Date: 20080405
  Serious: Yes (Hospitalization, Other)
  Sender: FDA-Public Use
  Company Number: ENTC2006-0380

PATIENT
  Age: 77 Year
  Sex: Female

DRUGS (3)
  1. STALEVO 100 [Suspect]
     Dosage: ORAL
     Route: 048
     Dates: start: 20060610, end: 20060612
  2. SINEMET [Suspect]
     Dosage: 800 MG, QD
     Dates: start: 20060613
  3. ZOLOFT [Concomitant]

REACTIONS (2)
  - ALOPECIA [None]
  - NEUROLEPTIC MALIGNANT SYNDROME [None]
